FAERS Safety Report 23352136 (Version 1)
Quarter: 2023Q4

REPORT INFORMATION
  Report Type: Spontaneous
  Country: JP (occurrence: JP)
  Receive Date: 20231229
  Receipt Date: 20231229
  Transmission Date: 20240110
  Serious: Yes (Hospitalization, Other)
  Sender: FDA-Public Use
  Company Number: JP-BRISTOL-MYERS SQUIBB COMPANY-2023-187111

PATIENT
  Age: 81 Year
  Sex: Male

DRUGS (4)
  1. NIVOLUMAB [Suspect]
     Active Substance: NIVOLUMAB
     Indication: Metastatic renal cell carcinoma
  2. IPILIMUMAB [Suspect]
     Active Substance: IPILIMUMAB
     Indication: Metastatic renal cell carcinoma
  3. DENOSUMAB [Concomitant]
     Active Substance: DENOSUMAB
     Indication: Metastatic renal cell carcinoma
  4. DENOSUMAB [Concomitant]
     Active Substance: DENOSUMAB
     Indication: Metastases to bone

REACTIONS (3)
  - Immune-mediated thyroiditis [Recovering/Resolving]
  - Fulminant type 1 diabetes mellitus [Unknown]
  - Adrenocorticotropic hormone deficiency [Unknown]
